FAERS Safety Report 22776947 (Version 5)
Quarter: 2024Q1

REPORT INFORMATION
  Report Type: Spontaneous
  Country: US (occurrence: US)
  Receive Date: 20230802
  Receipt Date: 20240111
  Transmission Date: 20240410
  Serious: Yes (Hospitalization, Other)
  Sender: FDA-Public Use
  Company Number: US-BRISTOL-MYERS SQUIBB COMPANY-2023-108041

PATIENT
  Age: 69 Year
  Sex: Female
  Weight: 88.45 kg

DRUGS (1)
  1. POMALYST [Suspect]
     Active Substance: POMALIDOMIDE
     Indication: Plasma cell myeloma
     Dosage: FREQUENCY: 3W ON 1W OFF/21DAYS ON AND 7 DAYS OFF/ DAILY FOR 21 DAYS
     Route: 048
     Dates: start: 20220701

REACTIONS (4)
  - Cerebrovascular accident [Recovering/Resolving]
  - Haemorrhage intracranial [Unknown]
  - Neutropenia [Unknown]
  - Blood bilirubin increased [Unknown]

NARRATIVE: CASE EVENT DATE: 20230701
